FAERS Safety Report 7030071-8 (Version None)
Quarter: 2010Q4

REPORT INFORMATION
  Report Type: 
  Country: None (occurrence: None)
  Receive Date: 20101006
  Receipt Date: 20100928
  Transmission Date: 20110411
  Serious: Yes (Disabling, Other)
  Sender: FDA-Public Use
  Company Number: BR-PFIZER INC-2010106937

PATIENT
  Age: 55 Year
  Sex: Female
  Weight: 66 kg

DRUGS (11)
  1. CHAMPIX [Suspect]
     Indication: TOBACCO USER
     Dosage: UNK
     Route: 048
     Dates: start: 20100809
  2. CHAMPIX [Suspect]
     Dosage: 1 MG, UNK
     Route: 048
     Dates: end: 20100817
  3. CHAMPIX [Suspect]
     Dosage: 0.5 MG, UNK
     Route: 048
     Dates: start: 20100820, end: 20100824
  4. CHAMPIX [Suspect]
     Dosage: 1 MG, UNK
     Route: 048
     Dates: start: 20100825
  5. SERETIDE [Concomitant]
     Dosage: 250MG/30MG
  6. FLUTICASONE FUROATE [Concomitant]
     Dosage: 27.5 UG, 2X/DAY
  7. RINOSORO [Concomitant]
     Indication: BRONCHITIS
     Dosage: UNK
  8. ASPIRIN [Concomitant]
     Dosage: 100 MG, 1X/DAY
  9. BALCOR [Concomitant]
     Dosage: 90 MG, 2X/DAY
  10. ALDAZIDA [Concomitant]
     Indication: BLOOD PRESSURE INCREASED
     Dosage: 50 MG, 1X/DAY
  11. SIMVASTATIN [Concomitant]
     Indication: BLOOD CHOLESTEROL INCREASED
     Dosage: 20 MG, 1X/DAY

REACTIONS (9)
  - ANXIETY [None]
  - BLISTER [None]
  - BLOOD PRESSURE FLUCTUATION [None]
  - CREPITATIONS [None]
  - GENERALISED ERYTHEMA [None]
  - HYPERSENSITIVITY [None]
  - NAUSEA [None]
  - SWELLING [None]
  - VOMITING [None]
